FAERS Safety Report 14014484 (Version 1)
Quarter: 2017Q3

REPORT INFORMATION
  Report Type: Spontaneous
  Country: US (occurrence: US)
  Receive Date: 20170927
  Receipt Date: 20170927
  Transmission Date: 20171128
  Serious: Yes (Other)
  Sender: FDA-Public Use
  Company Number: US-BRISTOL-MYERS SQUIBB COMPANY-BMS-2017-084717

PATIENT
  Sex: Male
  Weight: 76.2 kg

DRUGS (1)
  1. ELIQUIS [Suspect]
     Active Substance: APIXABAN
     Indication: PULMONARY EMBOLISM
     Dosage: 2.5 MG, UNK
     Route: 048
     Dates: start: 2017

REACTIONS (4)
  - Prescribed underdose [Unknown]
  - Haematospermia [Unknown]
  - Haematochezia [Unknown]
  - Angina pectoris [Unknown]

NARRATIVE: CASE EVENT DATE: 2017
